FAERS Safety Report 9415692 (Version 1)
Quarter: 2013Q3

REPORT INFORMATION
  Report Type: Spontaneous
  Country: US (occurrence: US)
  Receive Date: 20130723
  Receipt Date: 20130723
  Transmission Date: 20140515
  Serious: Yes (Other)
  Sender: FDA-Public Use
  Company Number: US-009507513-1307USA008179

PATIENT
  Sex: Male

DRUGS (1)
  1. COPPERTONE NUTRASHIELD SUNSCREEN LOTION SPF 70 [Suspect]
     Indication: PRODUCT USED FOR UNKNOWN INDICATION

REACTIONS (4)
  - Skin cancer [Unknown]
  - Sunburn [Unknown]
  - Drug ineffective [Unknown]
  - Expired drug administered [Unknown]
